FAERS Safety Report 11170701 (Version 4)
Quarter: 2015Q2

REPORT INFORMATION
  Report Type: Spontaneous
  Country: BE (occurrence: BE)
  Receive Date: 20150608
  Receipt Date: 20150623
  Transmission Date: 20150821
  Serious: Yes (Life-Threatening, Hospitalization, Other)
  Sender: FDA-Public Use
  Company Number: BE-ABBVIE-15K-013-1402264-00

PATIENT
  Age: 49 Year
  Sex: Male
  Weight: 59 kg

DRUGS (4)
  1. HUMIRA [Suspect]
     Active Substance: ADALIMUMAB
     Indication: ANKYLOSING SPONDYLITIS
     Route: 058
     Dates: start: 201206, end: 20121215
  2. METHOTREXATE [Concomitant]
     Active Substance: METHOTREXATE
     Indication: UVEITIS
  3. METHOTREXATE [Concomitant]
     Active Substance: METHOTREXATE
     Indication: ANKYLOSING SPONDYLITIS
     Dates: start: 201206, end: 20121215
  4. HUMIRA [Suspect]
     Active Substance: ADALIMUMAB
     Route: 058
     Dates: start: 201408

REACTIONS (8)
  - Nasal septal operation [Unknown]
  - Splinter [Unknown]
  - Lymphocytic leukaemia [Unknown]
  - Lymph node tuberculosis [Recovered/Resolved]
  - Lymphocytosis [Recovered/Resolved]
  - Feeling cold [Unknown]
  - Secretion discharge [Unknown]
  - Cough [Unknown]

NARRATIVE: CASE EVENT DATE: 201210
